FAERS Safety Report 8829359 (Version 7)
Quarter: 2015Q2

REPORT INFORMATION
  Report Type: Report from Study
  Country: CA (occurrence: CA)
  Receive Date: 20121008
  Receipt Date: 20150617
  Transmission Date: 20150821
  Serious: Yes (Hospitalization)
  Sender: FDA-Public Use
  Company Number: CA-ROCHE-1141436

PATIENT
  Age: 64 Year
  Sex: Female
  Weight: 68.1 kg

DRUGS (13)
  1. PANTOPRAZOLE [Concomitant]
     Active Substance: PANTOPRAZOLE SODIUM
  2. FERROUS FUMARATE [Concomitant]
     Active Substance: FERROUS FUMARATE
  3. RITUXAN [Suspect]
     Active Substance: RITUXIMAB
     Route: 042
     Dates: start: 20110106
  4. DIPHENHYDRAMINE HCL [Suspect]
     Active Substance: DIPHENHYDRAMINE HYDROCHLORIDE
     Indication: PRODUCT USED FOR UNKNOWN INDICATION
     Route: 048
     Dates: start: 20110106, end: 20140618
  5. FOSAMAX [Concomitant]
     Active Substance: ALENDRONATE SODIUM
  6. FLAXSEED [Concomitant]
     Active Substance: FLAX SEED
  7. ACETAMINOPHEN. [Concomitant]
     Active Substance: ACETAMINOPHEN
     Indication: PREMEDICATION
     Route: 048
     Dates: start: 20110106
  8. RITUXAN [Suspect]
     Active Substance: RITUXIMAB
     Indication: RHEUMATOID ARTHRITIS
     Dosage: LAST DOSE ON 18/JUN/2014.
     Route: 042
     Dates: start: 20110101
  9. DIPHENHYDRAMINE HCL [Suspect]
     Active Substance: DIPHENHYDRAMINE HYDROCHLORIDE
     Route: 048
     Dates: start: 20141223
  10. DOCUSATE [Concomitant]
     Active Substance: DOCUSATE
     Route: 065
     Dates: start: 201206
  11. METHYLPREDNISOLONE. [Concomitant]
     Active Substance: METHYLPREDNISOLONE
     Route: 042
     Dates: start: 20110106
  12. AZATHIOPRINE. [Concomitant]
     Active Substance: AZATHIOPRINE
  13. PREDNISONE. [Concomitant]
     Active Substance: PREDNISONE
     Indication: RHEUMATOID ARTHRITIS
     Route: 048
     Dates: start: 20100606

REACTIONS (6)
  - Ankle fracture [Recovered/Resolved]
  - Knee operation [Recovered/Resolved]
  - Fall [Recovered/Resolved]
  - Hyperkeratosis [Not Recovered/Not Resolved]
  - White blood cell count decreased [Unknown]
  - Somnolence [Unknown]

NARRATIVE: CASE EVENT DATE: 20120621
